FAERS Safety Report 10583086 (Version 1)
Quarter: 2014Q4

REPORT INFORMATION
  Report Type: Spontaneous
  Country: NL (occurrence: NL)
  Receive Date: 20141114
  Receipt Date: 20141114
  Transmission Date: 20150529
  Serious: Yes (Other)
  Sender: FDA-Public Use
  Company Number: NL-CIPLA LTD.-2014NL01760

PATIENT

DRUGS (2)
  1. GEMCITABINE [Suspect]
     Active Substance: GEMCITABINE\GEMCITABINE HYDROCHLORIDE
     Indication: NON-SMALL CELL LUNG CANCER
     Dosage: 1,000 MG/M2 AT DAYS 2 AND 9 AS THE 21 DAY SCHEDULE
  2. NAMI-A [Suspect]
     Active Substance: INVESTIGATIONAL PRODUCT
     Dosage: 450 MG/M2 AT DAY 1 AND 8 EVERY 21 DAYS

REACTIONS (2)
  - Disease progression [Unknown]
  - Pneumonitis [Unknown]
